FAERS Safety Report 8911910 (Version 2)
Quarter: 2012Q4

REPORT INFORMATION
  Report Type: Spontaneous
  Country: US (occurrence: None)
  Receive Date: 20121113
  Receipt Date: 20121123
  Transmission Date: 20130627
  Serious: Yes (Other)
  Sender: FDA-Public Use
  Company Number: AUR-APL-2012-04812

PATIENT
  Age: 79 Year
  Sex: Female

DRUGS (2)
  1. ALENDRONATE SODIUIM [Suspect]
     Indication: OSTEOPOROSIS
     Dosage: , 1 in 1 wk)
     Route: 048
  2. CALCIUM + VITAMIN D [Concomitant]

REACTIONS (3)
  - Fall [None]
  - Joint injury [None]
  - Arthralgia [None]
